FAERS Safety Report 7304690-5 (Version None)
Quarter: 2011Q1

REPORT INFORMATION
  Report Type: 
  Country: None (occurrence: None)
  Receive Date: 20110222
  Receipt Date: 20110211
  Transmission Date: 20110831
  Serious: Yes (Hospitalization)
  Sender: FDA-Public Use
  Company Number: BE-AMGEN-BELSP2010009361

PATIENT
  Age: 48 Year
  Sex: Female

DRUGS (9)
  1. MARCOUMAR [Concomitant]
     Dosage: UNK
     Route: 048
     Dates: start: 20110106
  2. AGGRENOX [Concomitant]
     Dosage: UNK UNK, BID
     Route: 048
     Dates: end: 20110106
  3. PYRIDOXINE [Concomitant]
     Dosage: UNK
     Route: 048
     Dates: start: 20101025
  4. DURAGESIC-100 [Concomitant]
     Dosage: 50 MG, AS NEEDED
     Route: 062
  5. ENBREL [Suspect]
     Indication: RHEUMATOID ARTHRITIS
     Dosage: 50 MG, UNK
     Route: 058
     Dates: start: 20101124
  6. LIPITOR [Concomitant]
     Dosage: 80 MG, 1X/DAY
     Route: 048
  7. NICOTIBINE [Concomitant]
     Dosage: 300 MG, 1X/DAY
     Route: 048
     Dates: start: 20101025
  8. CIPRALEX                           /01588501/ [Concomitant]
     Dosage: 10 MG, 1X/DAY
     Route: 048
  9. METHOTREXATE [Concomitant]
     Dosage: UNK UNK, QWK
     Route: 048

REACTIONS (1)
  - BRAIN STEM INFARCTION [None]
